FAERS Safety Report 5502578-3 (Version None)
Quarter: 2007Q4

REPORT INFORMATION
  Report Type: 
  Country: None (occurrence: None)
  Receive Date: 20071031
  Receipt Date: 20071025
  Transmission Date: 20080405
  Serious: Yes (Other)
  Sender: FDA-Public Use
  Company Number: PHEH2007US13896

PATIENT
  Age: 50 Year
  Sex: Female
  Weight: 64.852 kg

DRUGS (2)
  1. GLEEVEC [Suspect]
     Indication: CHRONIC MYELOID LEUKAEMIA
     Dosage: 400 MG, QD
     Route: 048
     Dates: start: 20050801
  2. SYNTHROID [Concomitant]

REACTIONS (7)
  - BASEDOW'S DISEASE [None]
  - CONDITION AGGRAVATED [None]
  - EXOPHTHALMOS [None]
  - PERIORBITAL OEDEMA [None]
  - RADIOTHERAPY [None]
  - SKIN LESION [None]
  - SURGERY [None]
